FAERS Safety Report 13344860 (Version 1)
Quarter: 2017Q1

REPORT INFORMATION
  Report Type: Spontaneous
  Country: JP (occurrence: JP)
  Receive Date: 20170317
  Receipt Date: 20170317
  Transmission Date: 20170428
  Serious: Yes (Other)
  Sender: FDA-Public Use
  Company Number: JP-AMGEN-JPNSP2017041552

PATIENT
  Age: 61 Year
  Sex: Male

DRUGS (2)
  1. REGPARA [Suspect]
     Active Substance: CINACALCET HYDROCHLORIDE
     Indication: CHRONIC KIDNEY DISEASE
     Dosage: 25 MG, UNK
     Route: 048
     Dates: start: 200901, end: 201004
  2. OXAROL [Concomitant]
     Active Substance: MAXACALCITOL
     Route: 040

REACTIONS (1)
  - Alopecia [Unknown]
